FAERS Safety Report 7008890-3 (Version None)
Quarter: 2010Q3

REPORT INFORMATION
  Report Type: 
  Country: None (occurrence: None)
  Receive Date: 20100923
  Receipt Date: 20100913
  Transmission Date: 20110219
  Serious: Yes (Hospitalization)
  Sender: FDA-Public Use
  Company Number: JP-BIOGENIDEC-2010BI032066

PATIENT
  Age: 43 Year
  Sex: Female

DRUGS (20)
  1. AVONEX [Suspect]
     Indication: RELAPSING-REMITTING MULTIPLE SCLEROSIS
     Route: 030
     Dates: start: 20080728, end: 20100524
  2. PREDNISOLONE [Concomitant]
     Dates: start: 20080728, end: 20081021
  3. PREDNISOLONE [Concomitant]
     Dates: start: 20100525
  4. PANTOSIN [Concomitant]
     Dates: start: 20080728
  5. MAGNESIUM OXIDE [Concomitant]
     Dates: start: 20080728
  6. DEPAS [Concomitant]
     Dates: start: 20080728
  7. PURSENNID [Concomitant]
     Dates: start: 20080728
  8. GASMOTIN [Concomitant]
     Dates: start: 20080728
  9. OMEPRAL [Concomitant]
     Dates: start: 20091228
  10. AMITRIPTYLINE HCL [Concomitant]
     Dates: start: 20100119
  11. SELBEX [Concomitant]
     Dates: start: 20100216
  12. PREDONINE [Concomitant]
     Dates: start: 20100515, end: 20100524
  13. LIORESAL [Concomitant]
     Dates: start: 20100521
  14. TEGRETOL [Concomitant]
     Dates: start: 20080728, end: 20100119
  15. RINPRAL [Concomitant]
     Dates: start: 20080728, end: 20090630
  16. STROCAIN [Concomitant]
     Dates: start: 20080825, end: 20090414
  17. GABAPEN [Concomitant]
     Dates: start: 20080922, end: 20091130
  18. SOLU-MEDROL [Concomitant]
     Dates: start: 20090216, end: 20090223
  19. TOPIRAMATE [Concomitant]
     Dates: start: 20091130, end: 20100119
  20. PREDNISOLONE [Concomitant]
     Dates: start: 20080728, end: 20081021

REACTIONS (1)
  - NEUROMYELITIS OPTICA [None]
